FAERS Safety Report 8270210-4 (Version None)
Quarter: 2012Q2

REPORT INFORMATION
  Report Type: 
  Country: None (occurrence: None)
  Receive Date: 20120405
  Receipt Date: 20120322
  Transmission Date: 20120825
  Serious: Yes (Hospitalization)
  Sender: FDA-Public Use
  Company Number: FR-2012-1513

PATIENT
  Age: 56 Year
  Sex: Female

DRUGS (1)
  1. NAVELBINE [Suspect]
     Indication: LUNG ADENOCARCINOMA
     Dosage: 30 MG/M2 IV
     Route: 042
     Dates: start: 20111212, end: 20111219

REACTIONS (8)
  - NEUROPATHY PERIPHERAL [None]
  - DECREASED APPETITE [None]
  - NERVOUS SYSTEM DISORDER [None]
  - POST PROCEDURAL OEDEMA [None]
  - ATAXIA [None]
  - DIZZINESS [None]
  - ASTHENIA [None]
  - PULMONARY EMBOLISM [None]
